FAERS Safety Report 23799170 (Version 3)
Quarter: 2024Q2

REPORT INFORMATION
  Report Type: Spontaneous
  Country: DE (occurrence: DE)
  Receive Date: 20240430
  Receipt Date: 20240618
  Transmission Date: 20240716
  Serious: Yes (Hospitalization)
  Sender: FDA-Public Use
  Company Number: DE-ELI_LILLY_AND_COMPANY-DE202404012659

PATIENT
  Age: 63 Year
  Sex: Male
  Weight: 92 kg

DRUGS (18)
  1. MOUNJARO [Suspect]
     Active Substance: TIRZEPATIDE
     Indication: Type 2 diabetes mellitus
     Dosage: 2.5 MG, WEEKLY (1/W)
     Route: 058
     Dates: start: 20240124, end: 20240207
  2. LYUMJEV [Suspect]
     Active Substance: INSULIN LISPRO-AABC
     Indication: Type 2 diabetes mellitus
     Dosage: UNK UNK, UNKNOWN
     Route: 058
     Dates: start: 20201118
  3. DAPAGLIFLOZIN [Concomitant]
     Active Substance: DAPAGLIFLOZIN
     Indication: Diabetes mellitus
     Dosage: 10 MG, DAILY
     Route: 065
     Dates: start: 20220119
  4. PROTAPHANE [Concomitant]
     Active Substance: INSULIN HUMAN
     Indication: Diabetes mellitus
     Dosage: UNK UNK, UNKNOWN
     Route: 065
     Dates: start: 20220916
  5. ATORVASTATIN [Concomitant]
     Active Substance: ATORVASTATIN
     Indication: Blood cholesterol abnormal
     Dosage: 40 MG, DAILY
     Route: 065
     Dates: start: 2017
  6. EZETIMIBE [Concomitant]
     Active Substance: EZETIMIBE
     Indication: Blood cholesterol abnormal
     Dosage: 10 MG, DAILY
     Route: 065
     Dates: start: 202110
  7. CLOPIDOGREL [Concomitant]
     Active Substance: CLOPIDOGREL BISULFATE
     Indication: Coronary artery disease
     Dosage: 75 MG, DAILY
     Route: 065
     Dates: start: 202201
  8. CLOPIDOGREL [Concomitant]
     Active Substance: CLOPIDOGREL BISULFATE
     Indication: Peripheral arterial occlusive disease
  9. ASPIRIN [Concomitant]
     Active Substance: ASPIRIN
     Indication: Coronary artery disease
     Dosage: 100 MG, DAILY
     Route: 065
  10. ASPIRIN [Concomitant]
     Active Substance: ASPIRIN
     Indication: Peripheral arterial occlusive disease
  11. VALSARTAN [Concomitant]
     Active Substance: VALSARTAN
     Indication: Hypertonia
     Dosage: 320 MG, DAILY
     Route: 065
  12. BISOPROLOL [Concomitant]
     Active Substance: BISOPROLOL\BISOPROLOL FUMARATE
     Indication: Hypertonia
     Dosage: 10 MG, DAILY
     Route: 065
  13. LERCANIDIPINE [Concomitant]
     Active Substance: LERCANIDIPINE
     Indication: Hypertonia
     Dosage: 10 MG, DAILY
     Route: 065
  14. TORSEMIDE [Concomitant]
     Active Substance: TORSEMIDE
     Indication: Hypertonia
     Dosage: 0.5 DOSAGE FORM, DAILY
  15. QUININE SULFATE [Concomitant]
     Active Substance: QUININE SULFATE
     Indication: Muscle spasms
     Dosage: UNK UNK, DAILY
     Route: 065
     Dates: start: 2017
  16. OMEPRAZOLE [Concomitant]
     Active Substance: DONEPEZIL HYDROCHLORIDE\OMEPRAZOLE\OMEPRAZOLE MAGNESIUM
     Indication: Reflux gastritis
     Dosage: 20 MG, DAILY
     Route: 065
     Dates: start: 2017
  17. ALLOPURINOL [Concomitant]
     Active Substance: ALLOPURINOL
     Indication: Hyperuricaemia
     Dosage: 300 MG, DAILY
     Route: 065
     Dates: start: 2017
  18. CINNARIZIN/DIMENHYDRINAT EBB [Concomitant]
     Indication: Dizziness
     Dosage: UNK UNK, DAILY
     Route: 065
     Dates: start: 2017

REACTIONS (6)
  - Gamma-glutamyltransferase increased [Recovering/Resolving]
  - Alanine aminotransferase increased [Recovering/Resolving]
  - Aspartate aminotransferase increased [Recovering/Resolving]
  - Blood alkaline phosphatase increased [Recovering/Resolving]
  - Hepatic steatosis [Unknown]
  - Transaminases increased [Unknown]

NARRATIVE: CASE EVENT DATE: 20240129
